FAERS Safety Report 8157010-0 (Version None)
Quarter: 2012Q1

REPORT INFORMATION
  Report Type: 
  Country: None (occurrence: None)
  Receive Date: 20120222
  Receipt Date: 20120216
  Transmission Date: 20120608
  Serious: Yes (Hospitalization, Other)
  Sender: FDA-Public Use
  Company Number: US-MERCK-1104USA01066

PATIENT
  Age: 56 Year
  Sex: Female

DRUGS (6)
  1. CALCIUM (UNSPECIFIED) [Concomitant]
     Route: 065
     Dates: start: 20010101
  2. VITAMIN D (UNSPECIFIED) [Concomitant]
     Route: 065
     Dates: start: 20010101
  3. FOSAMAX [Suspect]
     Indication: OSTEOPENIA
     Route: 048
     Dates: start: 20010901, end: 20100901
  4. VITAMINS (UNSPECIFIED) [Concomitant]
     Route: 065
     Dates: start: 20010101
  5. HORMONES (UNSPECIFIED) [Concomitant]
     Route: 065
     Dates: start: 19940101, end: 20020101
  6. FOSAMAX [Suspect]
     Route: 048
     Dates: start: 20080101

REACTIONS (18)
  - STAPHYLOCOCCAL INFECTION [None]
  - GASTROOESOPHAGEAL REFLUX DISEASE [None]
  - ARTHROPATHY [None]
  - NASAL DISORDER [None]
  - SPINAL DISORDER [None]
  - TOOTH DISORDER [None]
  - RIB FRACTURE [None]
  - MIGRAINE [None]
  - LOW TURNOVER OSTEOPATHY [None]
  - ANGIOPATHY [None]
  - TIBIA FRACTURE [None]
  - ANXIETY [None]
  - INFECTION [None]
  - FEMUR FRACTURE [None]
  - ANKLE FRACTURE [None]
  - BLOOD CHOLESTEROL INCREASED [None]
  - SINUS DISORDER [None]
  - HYPERTENSION [None]
